FAERS Safety Report 8072543-3 (Version None)
Quarter: 2012Q1

REPORT INFORMATION
  Report Type: 
  Country: None (occurrence: None)
  Receive Date: 20120126
  Receipt Date: 20120119
  Transmission Date: 20120608
  Serious: Yes (Other)
  Sender: FDA-Public Use
  Company Number: US-PFIZER INC-2010076955

PATIENT
  Sex: Female

DRUGS (3)
  1. LYRICA [Concomitant]
     Indication: FIBROMYALGIA
  2. NEURONTIN [Suspect]
     Indication: MULTIPLE SCLEROSIS
     Dosage: UNK
  3. LYRICA [Concomitant]
     Indication: MULTIPLE SCLEROSIS

REACTIONS (5)
  - URINARY INCONTINENCE [None]
  - HAND DEFORMITY [None]
  - NERVE INJURY [None]
  - PAIN [None]
  - STRESS [None]
